FAERS Safety Report 7753121-X (Version None)
Quarter: 2011Q3

REPORT INFORMATION
  Report Type: 
  Country: None (occurrence: None)
  Receive Date: 20110915
  Receipt Date: 20110907
  Transmission Date: 20111222
  Serious: Yes (Other)
  Sender: FDA-Public Use
  Company Number: CA-ASTRAZENECA-2011SE47448

PATIENT
  Age: 68 Year
  Sex: Female

DRUGS (8)
  1. SEROQUEL [Suspect]
     Route: 048
  2. SEROQUEL [Suspect]
     Route: 048
     Dates: start: 20110401
  3. GABAPENTIN [Concomitant]
     Route: 048
  4. CELEXA [Concomitant]
     Route: 048
  5. BISOPROLOL FUMARATE [Concomitant]
     Route: 048
  6. SEROQUEL [Suspect]
     Route: 048
     Dates: start: 20110601
  7. SEROQUEL [Suspect]
     Route: 048
  8. VALIUM [Concomitant]

REACTIONS (7)
  - NAUSEA [None]
  - ANXIETY [None]
  - ARRHYTHMIA [None]
  - MUSCLE CONTRACTIONS INVOLUNTARY [None]
  - DIZZINESS [None]
  - PALPITATIONS [None]
  - STRESS [None]
